FAERS Safety Report 20935254 (Version 4)
Quarter: 2022Q3

REPORT INFORMATION
  Report Type: Spontaneous
  Country: JP (occurrence: JP)
  Receive Date: 20220609
  Receipt Date: 20220823
  Transmission Date: 20221026
  Serious: Yes (Life-Threatening, Hospitalization, Disabling, Other)
  Sender: FDA-Public Use
  Company Number: JP-NBI-J202209857BIPI

PATIENT
  Age: 37 Year
  Sex: Female
  Weight: 47.5 kg

DRUGS (20)
  1. JARDIANCE [Suspect]
     Active Substance: EMPAGLIFLOZIN
     Indication: Cardiac failure chronic
     Route: 048
     Dates: start: 20220517, end: 20220605
  2. ENALAPRIL [Concomitant]
     Active Substance: ENALAPRIL
     Indication: Cardiac failure chronic
     Route: 048
     Dates: start: 20170310
  3. PIMOBENDAN [Concomitant]
     Active Substance: PIMOBENDAN
     Indication: Cardiac failure chronic
     Route: 048
     Dates: start: 20190618
  4. PIMOBENDAN [Concomitant]
     Active Substance: PIMOBENDAN
     Indication: Product used for unknown indication
     Route: 048
  5. FUROSEMIDE [Concomitant]
     Active Substance: FUROSEMIDE
     Indication: Cardiac failure chronic
     Route: 048
     Dates: start: 20170215
  6. FUROSEMIDE [Concomitant]
     Active Substance: FUROSEMIDE
     Indication: Product used for unknown indication
     Route: 048
     Dates: start: 20220607
  7. FUROSEMIDE [Concomitant]
     Active Substance: FUROSEMIDE
     Route: 048
  8. SAMSCA [Concomitant]
     Active Substance: TOLVAPTAN
     Indication: Cardiac failure chronic
     Route: 048
     Dates: start: 20190618
  9. SAMSCA [Concomitant]
     Active Substance: TOLVAPTAN
     Indication: Product used for unknown indication
     Route: 048
  10. SPIRONOLACTONE [Concomitant]
     Active Substance: SPIRONOLACTONE
     Indication: Cardiac failure chronic
     Route: 048
     Dates: start: 20170310
  11. SPIRONOLACTONE [Concomitant]
     Active Substance: SPIRONOLACTONE
     Indication: Product used for unknown indication
     Route: 048
  12. BISOPROLOL [Concomitant]
     Active Substance: BISOPROLOL
     Indication: Cardiac failure chronic
     Route: 048
     Dates: start: 20170417
  13. IVABRADINE HYDROCHLORIDE [Concomitant]
     Active Substance: IVABRADINE HYDROCHLORIDE
     Indication: Cardiac failure chronic
     Route: 048
     Dates: start: 20201215, end: 20220418
  14. IVABRADINE HYDROCHLORIDE [Concomitant]
     Active Substance: IVABRADINE HYDROCHLORIDE
     Route: 048
     Dates: start: 20220419, end: 20220508
  15. IVABRADINE HYDROCHLORIDE [Concomitant]
     Active Substance: IVABRADINE HYDROCHLORIDE
     Route: 048
     Dates: start: 20220509
  16. ROSUVASTATIN [Concomitant]
     Active Substance: ROSUVASTATIN
     Indication: Dyslipidaemia
     Route: 048
     Dates: start: 20190618
  17. LEVETIRACETAM [Concomitant]
     Active Substance: LEVETIRACETAM
     Indication: Cerebral infarction
     Route: 048
     Dates: start: 20170329
  18. VONOPRAZAN FUMARATE [Concomitant]
     Active Substance: VONOPRAZAN FUMARATE
     Indication: Gastrooesophageal reflux disease
     Route: 048
     Dates: start: 20170227
  19. FEBUXOSTAT [Concomitant]
     Active Substance: FEBUXOSTAT
     Indication: Hyperuricaemia
     Route: 048
     Dates: start: 20200929
  20. POTASSIUM GLUCONATE [Concomitant]
     Active Substance: POTASSIUM GLUCONATE
     Indication: Product used for unknown indication
     Route: 048
     Dates: end: 20220605

REACTIONS (7)
  - Arterial occlusive disease [Recovered/Resolved with Sequelae]
  - Cardiac failure [Recovering/Resolving]
  - Low cardiac output syndrome [Recovering/Resolving]
  - Cardiac arrest [Recovering/Resolving]
  - Cardiac ventricular thrombosis [Recovering/Resolving]
  - Atrial thrombosis [Recovering/Resolving]
  - Cardiac ventricular thrombosis [Not Recovered/Not Resolved]

NARRATIVE: CASE EVENT DATE: 20220603
